FAERS Safety Report 5408506-3 (Version None)
Quarter: 2007Q3

REPORT INFORMATION
  Report Type: 
  Country: None (occurrence: None)
  Receive Date: 20070806
  Receipt Date: 20070701
  Transmission Date: 20080115
  Serious: Yes (Death)
  Sender: FDA-Public Use
  Company Number: 07-192

PATIENT
  Age: 68 Year
  Sex: Male

DRUGS (1)
  1. CITALOPRAM HYDROBROMIDE [Suspect]
     Dosage: 20 MG QD X 7 DAYS;THEN 1/2 TAB QD X 2 DAYS THEN OFF FOR 2 DAYS

REACTIONS (5)
  - ANOREXIA [None]
  - COMPLETED SUICIDE [None]
  - DYSARTHRIA [None]
  - HYPERSOMNIA [None]
  - SUICIDAL IDEATION [None]
